FAERS Safety Report 10223914 (Version 1)
Quarter: 2014Q2

REPORT INFORMATION
  Report Type: Spontaneous
  Country: US (occurrence: US)
  Receive Date: 20140609
  Receipt Date: 20140609
  Transmission Date: 20141212
  Serious: Yes (Other)
  Sender: FDA-Public Use
  Company Number: US-JNJFOC-20140518599

PATIENT
  Age: 31 Year
  Sex: Male
  Weight: 95.26 kg

DRUGS (3)
  1. STELARA [Suspect]
     Indication: PSORIASIS
     Route: 058
     Dates: start: 20140224
  2. STELARA [Suspect]
     Indication: PSORIASIS
     Route: 058
     Dates: start: 201302
  3. TRIAMCINOLONE [Concomitant]
     Route: 065

REACTIONS (1)
  - Infertility [Not Recovered/Not Resolved]
